FAERS Safety Report 8440481-X (Version None)
Quarter: 2012Q2

REPORT INFORMATION
  Report Type: 
  Country: None (occurrence: None)
  Receive Date: 20120615
  Receipt Date: 20120607
  Transmission Date: 20120825
  Serious: Yes (Other)
  Sender: FDA-Public Use
  Company Number: FI-GLAXOSMITHKLINE-B0797062A

PATIENT
  Sex: Male

DRUGS (1)
  1. ZYBAN [Suspect]
     Indication: EX-TOBACCO USER
     Route: 065
     Dates: start: 20120101

REACTIONS (10)
  - DRY MOUTH [None]
  - WITHDRAWAL SYNDROME [None]
  - BALANCE DISORDER [None]
  - ABNORMAL DREAMS [None]
  - APATHY [None]
  - DECREASED INTEREST [None]
  - DIZZINESS [None]
  - CONFUSIONAL STATE [None]
  - DYSGRAPHIA [None]
  - DEPRESSION [None]
